FAERS Safety Report 7008431-0 (Version None)
Quarter: 2010Q3

REPORT INFORMATION
  Report Type: 
  Country: None (occurrence: None)
  Receive Date: 20100721
  Receipt Date: 20100419
  Transmission Date: 20110219
  Serious: No
  Sender: FDA-Public Use
  Company Number: LMI-2010-00301(0)

PATIENT
  Age: 24 Year
  Sex: Female
  Weight: 104.3273 kg

DRUGS (2)
  1. ABLAVAR [Suspect]
     Indication: NUCLEAR MAGNETIC RESONANCE IMAGING THORACIC
     Dosage: (13 ML), INTRAVENOUS
     Route: 042
     Dates: start: 20100419, end: 20100419
  2. ABLAVAR [Suspect]
     Indication: THORACIC OUTLET SYNDROME
     Dosage: (13 ML), INTRAVENOUS
     Route: 042
     Dates: start: 20100419, end: 20100419

REACTIONS (2)
  - NAUSEA [None]
  - SALIVARY HYPERSECRETION [None]
